FAERS Safety Report 7595975-6 (Version None)
Quarter: 2011Q3

REPORT INFORMATION
  Report Type: 
  Country: None (occurrence: None)
  Receive Date: 20110707
  Receipt Date: 20110627
  Transmission Date: 20111222
  Serious: Yes (Hospitalization)
  Sender: FDA-Public Use
  Company Number: PHHY2011US57793

PATIENT
  Sex: Female
  Weight: 78 kg

DRUGS (2)
  1. EXJADE [Suspect]
     Indication: BLOOD TEST ABNORMAL
  2. EXJADE [Suspect]
     Indication: IRON METABOLISM DISORDER
     Dosage: 500 MG, QD
     Route: 048
     Dates: start: 20110317

REACTIONS (1)
  - THROMBOSIS [None]
